FAERS Safety Report 6496244-8 (Version None)
Quarter: 2009Q4

REPORT INFORMATION
  Report Type: 
  Country: None (occurrence: None)
  Receive Date: 20091214
  Receipt Date: 20091030
  Transmission Date: 20100525
  Serious: No
  Sender: FDA-Public Use
  Company Number: US-BRISTOL-MYERS SQUIBB COMPANY-14838940

PATIENT
  Age: 15 Year
  Sex: Female

DRUGS (2)
  1. ABILIFY [Suspect]
     Indication: DEPRESSION
     Dosage: STARTED WITH 5 MG DOSE REDUCED TO 2.5MG
     Dates: start: 20090401
  2. ABILIFY [Suspect]
     Indication: BIPOLAR DISORDER
     Dosage: STARTED WITH 5 MG DOSE REDUCED TO 2.5MG
     Dates: start: 20090401

REACTIONS (1)
  - WEIGHT INCREASED [None]
